FAERS Safety Report 23387667 (Version 1)
Quarter: 2024Q1

REPORT INFORMATION
  Report Type: Other
  Country: DE (occurrence: None)
  Receive Date: 20240110
  Receipt Date: 20240110
  Transmission Date: 20240410
  Serious: No
  Sender: FDA-Public Use
  Company Number: DE-ROCHE-3489137

PATIENT
  Age: 43 Year
  Sex: Male
  Weight: 90 kg

DRUGS (17)
  1. OCREVUS [Suspect]
     Active Substance: OCRELIZUMAB
     Indication: Relapsing multiple sclerosis
     Route: 042
     Dates: start: 20190521, end: 20190604
  2. OCREVUS [Suspect]
     Active Substance: OCRELIZUMAB
     Route: 042
     Dates: start: 20191202
  3. RANITIDINE HYDROCHLORIDE [Concomitant]
     Active Substance: RANITIDINE HYDROCHLORIDE
     Indication: Premedication
     Route: 042
     Dates: start: 20190521, end: 20200611
  4. BACLOFEN [Concomitant]
     Active Substance: BACLOFEN
     Indication: Muscle spasticity
     Route: 048
     Dates: start: 20200928
  5. BACLOFEN [Concomitant]
     Active Substance: BACLOFEN
     Route: 048
     Dates: start: 20191202, end: 202202
  6. TAMSULOSIN [Concomitant]
     Active Substance: TAMSULOSIN
     Indication: Prophylaxis
     Route: 048
     Dates: start: 20211015
  7. DALFAMPRIDINE [Concomitant]
     Active Substance: DALFAMPRIDINE
     Indication: Multiple sclerosis
     Route: 048
     Dates: start: 20220106
  8. DALFAMPRIDINE [Concomitant]
     Active Substance: DALFAMPRIDINE
     Route: 048
     Dates: start: 20211015, end: 20211115
  9. WEIHRAUCH H15 [Concomitant]
     Indication: Prophylaxis
     Dosage: DEFINITION OF THE INTERVAL: AS REQUIRED
     Route: 045
  10. CIMETIDIN [Concomitant]
     Indication: Premedication
     Route: 042
     Dates: start: 20200611
  11. CHOLECALCIFEROL [Concomitant]
     Active Substance: CHOLECALCIFEROL
     Indication: Prophylaxis
     Dosage: 20000
     Route: 048
  12. CETIRIZINE [Concomitant]
     Active Substance: CETIRIZINE HYDROCHLORIDE
     Indication: Seasonal allergy
     Dosage: DEFINITION OF THE INTERVAL: AS REQUIRED
  13. VITAMIN D3 [Concomitant]
     Active Substance: CHOLECALCIFEROL
     Indication: Prophylaxis
     Route: 048
  14. SILDENAFIL [Concomitant]
     Active Substance: SILDENAFIL
     Indication: Sexual dysfunction
     Dosage: DEFINITION OF THE INTERVAL: AS REQUIRED
     Route: 048
     Dates: start: 20200611
  15. DALFAMPRIDINE [Concomitant]
     Active Substance: DALFAMPRIDINE
     Indication: Muscle spasticity
     Route: 048
     Dates: start: 202110, end: 202209
  16. GRAZAX [Concomitant]
     Active Substance: PHLEUM PRATENSE POLLEN
     Route: 048
     Dates: start: 202101
  17. VITAMIN K [Concomitant]
     Active Substance: PHYTONADIONE
     Indication: Prophylaxis
     Route: 048

REACTIONS (1)
  - COVID-19 [Recovered/Resolved]

NARRATIVE: CASE EVENT DATE: 20231101
